FAERS Safety Report 9168064 (Version 3)
Quarter: 2013Q2

REPORT INFORMATION
  Report Type: Spontaneous
  Country: JP (occurrence: None)
  Receive Date: 20130307
  Receipt Date: 20130625
  Transmission Date: 20140414
  Serious: Yes (Hospitalization)
  Sender: FDA-Public Use
  Company Number: TCI2013A00850

PATIENT
  Age: 63 Year
  Sex: Female

DRUGS (6)
  1. LANSAP [Suspect]
     Indication: HELICOBACTER INFECTION
     Dosage: 1 CARD (0.5 CARD, 2 IN 1 D)
     Route: 048
     Dates: start: 20130122
  2. LANSOPRAZOLE [Suspect]
     Route: 048
     Dates: start: 20130205
  3. ULCERLMIN [Suspect]
     Route: 048
     Dates: start: 20130207
  4. GASTER [Suspect]
     Route: 042
     Dates: start: 201302, end: 201302
  5. OMEPRAL [Suspect]
     Dates: start: 201302, end: 201302
  6. BIOFERMIN R (STREPTOCOCUS FAECALIS) [Concomitant]

REACTIONS (18)
  - Gastrooesophageal reflux disease [None]
  - Oropharyngeal pain [None]
  - Decreased appetite [None]
  - Stomatitis [None]
  - Glossitis [None]
  - Thirst [None]
  - Abdominal discomfort [None]
  - Cheilitis [None]
  - Aphagia [None]
  - Stomatitis [None]
  - Glossitis [None]
  - Cheilitis [None]
  - Hypoaesthesia [None]
  - Dizziness [None]
  - Oesophageal pain [None]
  - Malaise [None]
  - Drug ineffective [None]
  - Sensory disturbance [None]
